FAERS Safety Report 4811157-2 (Version None)
Quarter: 2005Q4

REPORT INFORMATION
  Report Type: 
  Country: None (occurrence: None)
  Receive Date: 20051027
  Receipt Date: 20051014
  Transmission Date: 20060501
  Serious: Yes (Disabling)
  Sender: FDA-Public Use
  Company Number: 2005GB02003

PATIENT
  Age: 44 Year
  Sex: Male

DRUGS (2)
  1. SEROQUEL [Suspect]
     Indication: SCHIZOPHRENIA
     Route: 048
  2. SEROQUEL [Suspect]
     Route: 048

REACTIONS (4)
  - CIRCULATORY COLLAPSE [None]
  - DELIRIUM [None]
  - LOSS OF CONSCIOUSNESS [None]
  - OVERDOSE [None]
